FAERS Safety Report 8226784-2 (Version None)
Quarter: 2012Q1

REPORT INFORMATION
  Report Type: 
  Country: None (occurrence: None)
  Receive Date: 20120322
  Receipt Date: 20120314
  Transmission Date: 20120608
  Serious: Yes (Hospitalization, Other)
  Sender: FDA-Public Use
  Company Number: US-BAYER-2012-017090

PATIENT
  Age: 23 Year
  Sex: Female

DRUGS (5)
  1. YAZ [Suspect]
     Indication: CONTRACEPTION
     Dosage: UNK
     Route: 048
     Dates: start: 20060901
  2. TRAMADOL HCL [Concomitant]
  3. VICODIN [Concomitant]
  4. YAZ [Suspect]
     Dosage: UNK
     Route: 048
     Dates: end: 20110201
  5. ZOFRAN [Concomitant]

REACTIONS (2)
  - MESENTERIC VEIN THROMBOSIS [None]
  - DEEP VEIN THROMBOSIS [None]
